FAERS Safety Report 6427204-0 (Version None)
Quarter: 2009Q4

REPORT INFORMATION
  Report Type: 
  Country: None (occurrence: None)
  Receive Date: 20091104
  Receipt Date: 20091030
  Transmission Date: 20100525
  Serious: Yes (Congenital Anomaly)
  Sender: FDA-Public Use
  Company Number: A0662894A

PATIENT
  Sex: Male
  Weight: 3.2 kg

DRUGS (6)
  1. PAXIL [Suspect]
     Indication: DEPRESSION
     Dosage: 20MG PER DAY
     Dates: start: 19970101, end: 19990101
  2. VITAMIN TAB [Concomitant]
  3. DILANTIN [Concomitant]
  4. TEGRETOL [Concomitant]
  5. AMPICILLIN [Concomitant]
     Dates: start: 19961219
  6. AZACTAM [Concomitant]
     Dates: start: 19961219

REACTIONS (3)
  - CARDIAC DISORDER [None]
  - CONGENITAL ANOMALY [None]
  - DRUG EXPOSURE DURING PREGNANCY [None]
